FAERS Safety Report 16756409 (Version 1)
Quarter: 2019Q3

REPORT INFORMATION
  Report Type: Spontaneous
  Country: CH (occurrence: CH)
  Receive Date: 20190829
  Receipt Date: 20190829
  Transmission Date: 20191005
  Serious: Yes (Other)
  Sender: FDA-Public Use
  Company Number: CH-ABBVIE-19P-151-2902027-00

PATIENT
  Age: 44 Year
  Sex: Male

DRUGS (1)
  1. SKYRIZI [Suspect]
     Active Substance: RISANKIZUMAB-RZAA
     Indication: PSORIASIS
     Route: 058
     Dates: start: 20190720

REACTIONS (2)
  - Dermo-hypodermitis [Recovered/Resolved]
  - Epidermal necrosis [Recovered/Resolved]

NARRATIVE: CASE EVENT DATE: 20190731
